FAERS Safety Report 5604089-3 (Version None)
Quarter: 2008Q1

REPORT INFORMATION
  Report Type: 
  Country: None (occurrence: None)
  Receive Date: 20080128
  Receipt Date: 20080116
  Transmission Date: 20080703
  Serious: Yes (Hospitalization)
  Sender: FDA-Public Use
  Company Number: ES-WYE-H02301808

PATIENT
  Age: 61 Year
  Sex: Male

DRUGS (4)
  1. TRANGOREX [Suspect]
     Indication: ATRIAL FIBRILLATION
     Route: 042
     Dates: start: 20071123, end: 20071125
  2. NOREPINEPHRINE [Concomitant]
     Dosage: 30 MG, FREQUENCY NOT SPECIFIED
     Route: 042
     Dates: start: 20071123, end: 20071125
  3. CEFTRIAXONE [Concomitant]
     Indication: SEPSIS
     Dosage: 4 MG, FREQUNCY NOT SPECIFIED
     Route: 042
     Dates: start: 20071121, end: 20071125
  4. TAVANIC [Interacting]
     Indication: SEPSIS
     Route: 042
     Dates: start: 20071121, end: 20071121

REACTIONS (4)
  - BRADYCARDIA [None]
  - DRUG INTERACTION [None]
  - ELECTROCARDIOGRAM QT PROLONGED [None]
  - TORSADE DE POINTES [None]
